FAERS Safety Report 9574624 (Version 1)
Quarter: 2013Q4

REPORT INFORMATION
  Report Type: Spontaneous
  Country: US (occurrence: US)
  Receive Date: 20131001
  Receipt Date: 20131001
  Transmission Date: 20140711
  Serious: Yes (Other)
  Sender: FDA-Public Use
  Company Number: US-ELI_LILLY_AND_COMPANY-US201309007227

PATIENT
  Sex: Female

DRUGS (2)
  1. CYMBALTA [Suspect]
     Indication: DIABETIC NEUROPATHY
     Dosage: 30 MG, EACH MORNING
  2. CYMBALTA [Suspect]
     Dosage: 30 MG, EACH EVENING

REACTIONS (2)
  - Cerebrovascular accident [Unknown]
  - Hypertension [Unknown]
